FAERS Safety Report 5106876-7 (Version None)
Quarter: 2006Q3

REPORT INFORMATION
  Report Type: 
  Country: None (occurrence: None)
  Receive Date: 20060731
  Receipt Date: 20051216
  Transmission Date: 20061208
  Serious: Yes (Death)
  Sender: FDA-Public Use
  Company Number: US-JNJFOC-20051005014

PATIENT
  Age: 52 Year
  Sex: Male

DRUGS (5)
  1. RISPERDAL [Suspect]
     Indication: MAJOR DEPRESSION
     Dosage: 3 MG, 1 IN 1 DAY, ORAL
     Route: 048
     Dates: start: 20030601
  2. PAXIL [Concomitant]
  3. RISPERDAL [Concomitant]
  4. KLONOPIN [Concomitant]
  5. GLUCOVANCE [Concomitant]

REACTIONS (1)
  - COMPLETED SUICIDE [None]
